FAERS Safety Report 18950154 (Version 1)
Quarter: 2021Q1

REPORT INFORMATION
  Report Type: Report from Study
  Country: US (occurrence: US)
  Receive Date: 20210228
  Receipt Date: 20210228
  Transmission Date: 20210420
  Serious: Yes (Other)
  Sender: FDA-Public Use
  Company Number: US-UCBSA-2021008521

PATIENT
  Age: 32 Year
  Sex: Female

DRUGS (1)
  1. LACOSAMIDE. [Suspect]
     Active Substance: LACOSAMIDE
     Indication: EPILEPSY

REACTIONS (4)
  - Postural orthostatic tachycardia syndrome [Unknown]
  - Maternal exposure during breast feeding [Unknown]
  - Heart rate increased [Unknown]
  - Fatigue [Unknown]
